FAERS Safety Report 22965265 (Version 5)
Quarter: 2023Q4

REPORT INFORMATION
  Report Type: Spontaneous
  Country: SE (occurrence: SE)
  Receive Date: 20230921
  Receipt Date: 20231031
  Transmission Date: 20240110
  Serious: Yes (Other)
  Sender: FDA-Public Use
  Company Number: SE-AMGEN-SWESP2023166841

PATIENT
  Age: 49 Year
  Sex: Male

DRUGS (1)
  1. OTEZLA [Suspect]
     Active Substance: APREMILAST
     Indication: Psoriatic arthropathy
     Dosage: UNK
     Route: 065
     Dates: start: 202302

REACTIONS (3)
  - Pulmonary fibrosis [Unknown]
  - Antinuclear antibody positive [Unknown]
  - Autoantibody positive [Unknown]

NARRATIVE: CASE EVENT DATE: 20230101
